FAERS Safety Report 8122326-0 (Version None)
Quarter: 2012Q1

REPORT INFORMATION
  Report Type: 
  Country: None (occurrence: None)
  Receive Date: 20120206
  Receipt Date: 20120123
  Transmission Date: 20120608
  Serious: Yes (Death)
  Sender: FDA-Public Use
  Company Number: JPI-P-015055

PATIENT
  Age: 46 Year
  Sex: Male

DRUGS (2)
  1. XYREM [Suspect]
     Indication: CATAPLEXY
     Dosage: 4.5 GM (2.25 GM, 2 IN 1 D), ORAL (4.5 GM FIRST DOSE/3 GM SECOND DOSE), ORAL
     Route: 048
     Dates: start: 20060929
  2. XYREM [Suspect]
     Indication: CATAPLEXY
     Dosage: 4.5 GM (2.25 GM, 2 IN 1 D), ORAL (4.5 GM FIRST DOSE/3 GM SECOND DOSE), ORAL
     Route: 048
     Dates: start: 20070301, end: 20070330

REACTIONS (7)
  - ABNORMAL BEHAVIOUR [None]
  - MENTAL IMPAIRMENT [None]
  - STUPOR [None]
  - ARNOLD-CHIARI MALFORMATION [None]
  - NARCOLEPSY [None]
  - UPPER RESPIRATORY TRACT INFECTION [None]
  - CARDIAC ARREST [None]
